FAERS Safety Report 9343814 (Version 1)
Quarter: 2013Q2

REPORT INFORMATION
  Report Type: Spontaneous
  Country: CN (occurrence: CN)
  Receive Date: 20130612
  Receipt Date: 20130612
  Transmission Date: 20140414
  Serious: Yes (Hospitalization)
  Sender: FDA-Public Use
  Company Number: CN-JNJFOC-20130602683

PATIENT
  Age: 9 Year
  Sex: Male
  Weight: 33 kg

DRUGS (2)
  1. PARACETAMOL [Suspect]
     Route: 048
  2. PARACETAMOL [Suspect]
     Indication: NASOPHARYNGITIS
     Route: 048
     Dates: start: 20120403, end: 20120406

REACTIONS (1)
  - Liver injury [Recovering/Resolving]
